FAERS Safety Report 10146126 (Version 1)
Quarter: 2014Q2

REPORT INFORMATION
  Report Type: Spontaneous
  Country: US (occurrence: None)
  Receive Date: 20140430
  Receipt Date: 20140430
  Transmission Date: 20141212
  Serious: Yes (Life-Threatening, Hospitalization)
  Sender: FDA-Public Use
  Company Number: None

PATIENT
  Age: 19 Year
  Sex: Female
  Weight: 55 kg

DRUGS (5)
  1. RIVAROXABAN 20 MG JANSSEN [Suspect]
     Indication: ANTICOAGULANT THERAPY
     Dosage: 2 TABS QD ORAL
     Route: 048
     Dates: start: 20140407, end: 20140409
  2. RIVAROXABAN 20 MG JANSSEN [Suspect]
     Indication: ATRIAL FIBRILLATION
     Dosage: 2 TABS QD ORAL
     Route: 048
     Dates: start: 20140407, end: 20140409
  3. ACYCLOVIR [Concomitant]
  4. DILTIAZEM SR [Concomitant]
  5. LISINOPRIL [Concomitant]

REACTIONS (1)
  - Neutrophil count decreased [None]
